FAERS Safety Report 9204899 (Version 1)
Quarter: 2013Q2

REPORT INFORMATION
  Report Type: Spontaneous
  Country: US (occurrence: None)
  Receive Date: 20130401
  Receipt Date: 20130401
  Transmission Date: 20140414
  Serious: Yes (Hospitalization)
  Sender: FDA-Public Use
  Company Number: None

PATIENT
  Age: 66 Year
  Sex: Male
  Weight: 65.5 kg

DRUGS (2)
  1. CARBOPLATIN [Suspect]
     Dates: start: 20130319
  2. DOCETAXEL (TAXOTERE) [Suspect]
     Dates: start: 20130319

REACTIONS (8)
  - Fatigue [None]
  - Dyspnoea exertional [None]
  - Productive cough [None]
  - Sputum discoloured [None]
  - Atelectasis [None]
  - Hypernatraemia [None]
  - Inflammation [None]
  - Pneumonia [None]
